FAERS Safety Report 24868376 (Version 1)
Quarter: 2025Q1

REPORT INFORMATION
  Report Type: Spontaneous
  Country: US (occurrence: US)
  Receive Date: 20250121
  Receipt Date: 20250121
  Transmission Date: 20250409
  Serious: Yes (Death, Hospitalization, Other)
  Sender: PFIZER
  Company Number: US-PFIZER INC-202500012214

PATIENT
  Age: 57 Year
  Sex: Male

DRUGS (20)
  1. HYDROXYZINE PAMOATE [Suspect]
     Active Substance: HYDROXYZINE PAMOATE
     Route: 048
  2. HYDROXYZINE PAMOATE [Suspect]
     Active Substance: HYDROXYZINE PAMOATE
     Route: 051
  3. SPIRONOLACTONE [Suspect]
     Active Substance: SPIRONOLACTONE
     Route: 048
  4. SPIRONOLACTONE [Suspect]
     Active Substance: SPIRONOLACTONE
     Route: 051
  5. AMLODIPINE [Suspect]
     Active Substance: AMLODIPINE BESYLATE
     Route: 048
  6. AMLODIPINE [Suspect]
     Active Substance: AMLODIPINE BESYLATE
     Route: 051
  7. ESCITALOPRAM [Suspect]
     Active Substance: ESCITALOPRAM OXALATE
     Route: 048
  8. ESCITALOPRAM [Suspect]
     Active Substance: ESCITALOPRAM OXALATE
     Route: 051
  9. METHYLENE BLUE [Suspect]
     Active Substance: METHYLENE BLUE
     Route: 048
  10. METHYLENE BLUE [Suspect]
     Active Substance: METHYLENE BLUE
     Route: 051
  11. LISINOPRIL [Suspect]
     Active Substance: LISINOPRIL
     Route: 048
  12. LISINOPRIL [Suspect]
     Active Substance: LISINOPRIL
     Route: 051
  13. SEMAGLUTIDE [Suspect]
     Active Substance: SEMAGLUTIDE
     Route: 048
  14. SEMAGLUTIDE [Suspect]
     Active Substance: SEMAGLUTIDE
     Route: 051
  15. CHLORTHALIDONE [Suspect]
     Active Substance: CHLORTHALIDONE
     Route: 048
  16. CHLORTHALIDONE [Suspect]
     Active Substance: CHLORTHALIDONE
     Route: 051
  17. ATORVASTATIN [Suspect]
     Active Substance: ATORVASTATIN
     Route: 048
  18. ATORVASTATIN [Suspect]
     Active Substance: ATORVASTATIN
     Route: 051
  19. CITALOPRAM [Suspect]
     Active Substance: CITALOPRAM
     Route: 048
  20. CITALOPRAM [Suspect]
     Active Substance: CITALOPRAM
     Route: 051

REACTIONS (1)
  - Completed suicide [Fatal]

NARRATIVE: CASE EVENT DATE: 20230101
